FAERS Safety Report 19743849 (Version 1)
Quarter: 2021Q3

REPORT INFORMATION
  Report Type: Spontaneous
  Country: GB (occurrence: GB)
  Receive Date: 20210825
  Receipt Date: 20210825
  Transmission Date: 20211014
  Serious: Yes (Other)
  Sender: FDA-Public Use
  Company Number: GB-ORGANON-O2108GBR001446

PATIENT
  Age: 33 Year
  Sex: Female
  Weight: 61 kg

DRUGS (8)
  1. PFIZER?BIONTECH COVID?19 VACCINE [Suspect]
     Active Substance: TOZINAMERAN
     Dosage: DOSE 1
     Dates: start: 20210525
  2. PFIZER?BIONTECH COVID?19 VACCINE [Suspect]
     Active Substance: TOZINAMERAN
     Dosage: DOSE 2
     Dates: start: 20210810
  3. NAPROXEN. [Concomitant]
     Active Substance: NAPROXEN
     Indication: ABDOMINAL PAIN
     Dosage: UNK
  4. NEXPLANON [Suspect]
     Active Substance: ETONOGESTREL
     Indication: ENDOMETRIOSIS
     Dosage: 1 IMPLANT
  5. FEXOFENADINE [Concomitant]
     Active Substance: FEXOFENADINE HYDROCHLORIDE
     Indication: SEASONAL ALLERGY
     Dosage: UNK
  6. ZOPICLONE [Concomitant]
     Active Substance: ZOPICLONE
     Indication: INSOMNIA
     Dosage: UNK
  7. ZAPAIN [Concomitant]
     Active Substance: ACETAMINOPHEN\CODEINE PHOSPHATE
     Indication: PAIN
     Dosage: UNK
  8. TOLTERODINE [Concomitant]
     Active Substance: TOLTERODINE
     Indication: URETHRAL PAIN
     Dosage: UNK

REACTIONS (7)
  - Endometriosis [Recovering/Resolving]
  - Pyrexia [Recovering/Resolving]
  - Fatigue [Recovering/Resolving]
  - Product dose omission issue [Recovering/Resolving]
  - Haemorrhage [Recovering/Resolving]
  - Intermenstrual bleeding [Recovered/Resolved]
  - Intermenstrual bleeding [Recovering/Resolving]

NARRATIVE: CASE EVENT DATE: 20210527
